FAERS Safety Report 15128593 (Version 1)
Quarter: 2018Q3

REPORT INFORMATION
  Report Type: Spontaneous
  Country: US (occurrence: US)
  Receive Date: 20180711
  Receipt Date: 20180711
  Transmission Date: 20181010
  Serious: Yes (Hospitalization, Other)
  Sender: FDA-Public Use
  Company Number: US-WEST-WARD PHARMACEUTICALS CORP.-US-H14001-17-02554

PATIENT
  Age: 27 Year
  Sex: Male

DRUGS (2)
  1. HEPARIN [Suspect]
     Active Substance: HEPARIN SODIUM
     Indication: PROPHYLAXIS
     Dosage: DRIP; HEPARIN ADMINISTERED AT ANOTHER HOSPITAL
  2. HEPARIN [Suspect]
     Active Substance: HEPARIN SODIUM
     Indication: ANTICOAGULANT THERAPY
     Dosage: DRIP; 2 DAYS AT THE OUTSIDE HOSPITAL AND 9 DAY AT THE INSTITUTION
     Route: 058

REACTIONS (3)
  - Heparin-induced thrombocytopenia [Recovered/Resolved]
  - Haemothorax [Recovering/Resolving]
  - Haemodynamic instability [Recovering/Resolving]
